FAERS Safety Report 13109138 (Version 4)
Quarter: 2017Q1

REPORT INFORMATION
  Report Type: Report from Study
  Country: US (occurrence: US)
  Receive Date: 20170112
  Receipt Date: 20170302
  Transmission Date: 20170428
  Serious: Yes (Death, Other)
  Sender: FDA-Public Use
  Company Number: US-JNJFOC-20170108839

PATIENT
  Age: 88 Year
  Sex: Female

DRUGS (1)
  1. IMBRUVICA [Suspect]
     Active Substance: IBRUTINIB
     Indication: WALDENSTROM^S MACROGLOBULINAEMIA
     Route: 048
     Dates: start: 20161229

REACTIONS (8)
  - Clostridium difficile infection [Unknown]
  - Urinary tract infection [Unknown]
  - Off label use [Unknown]
  - International normalised ratio increased [Unknown]
  - Hallucination, visual [Unknown]
  - Macular degeneration [Unknown]
  - Death [Fatal]
  - Product use issue [Unknown]

NARRATIVE: CASE EVENT DATE: 20161229
